FAERS Safety Report 10587530 (Version 1)
Quarter: 2014Q4

REPORT INFORMATION
  Report Type: Spontaneous
  Country: US (occurrence: US)
  Receive Date: 20141117
  Receipt Date: 20141117
  Transmission Date: 20150529
  Serious: No
  Sender: FDA-Public Use
  Company Number: US-BAYER-2014-165651

PATIENT
  Age: 41 Year
  Sex: Male
  Weight: 97.96 kg

DRUGS (2)
  1. GADAVIST [Suspect]
     Active Substance: GADOBUTROL
     Indication: NUCLEAR MAGNETIC RESONANCE IMAGING ABDOMINAL
  2. GADAVIST [Suspect]
     Active Substance: GADOBUTROL
     Indication: PANCREATITIS
     Dosage: 10 ML, ONCE
     Route: 042
     Dates: start: 20140929, end: 20140929

REACTIONS (3)
  - Nausea [Recovering/Resolving]
  - Vomiting [Recovering/Resolving]
  - Abdominal pain upper [Recovering/Resolving]

NARRATIVE: CASE EVENT DATE: 20140929
